FAERS Safety Report 12329527 (Version 1)
Quarter: 2016Q2

REPORT INFORMATION
  Report Type: Spontaneous
  Country: SE (occurrence: SE)
  Receive Date: 20160503
  Receipt Date: 20160503
  Transmission Date: 20160815
  Serious: Yes (Other)
  Sender: FDA-Public Use
  Company Number: SE-PFIZER INC-2016237810

PATIENT
  Age: 63 Year
  Sex: Male
  Weight: 90 kg

DRUGS (1)
  1. CHLOROMYCETIN [Suspect]
     Active Substance: CHLORAMPHENICOL
     Indication: EYE INFECTION
     Dosage: 1 DF, DAILY
     Route: 047
     Dates: start: 2016, end: 20160201

REACTIONS (1)
  - Cataract [Recovering/Resolving]

NARRATIVE: CASE EVENT DATE: 2016
